FAERS Safety Report 14779210 (Version 1)
Quarter: 2018Q2

REPORT INFORMATION
  Report Type: Spontaneous
  Country: US (occurrence: US)
  Receive Date: 20180419
  Receipt Date: 20180419
  Transmission Date: 20180711
  Serious: Yes (Death, Other)
  Sender: FDA-Public Use
  Company Number: US-IMPAX LABORATORIES, INC-2018-IPXL-01242

PATIENT
  Sex: Female

DRUGS (2)
  1. LABETALOL [Suspect]
     Active Substance: LABETALOL\LABETALOL HYDROCHLORIDE
     Indication: PRE-ECLAMPSIA
     Dosage: UNK
     Route: 042
  2. ADRENACLICK [Suspect]
     Active Substance: EPINEPHRINE
     Indication: BRONCHOSPASM
     Dosage: UNK
     Route: 065

REACTIONS (5)
  - Brain injury [Fatal]
  - Maternal exposure during pregnancy [Unknown]
  - Pulse absent [Unknown]
  - Hypoxia [Unknown]
  - Brain death [Fatal]
